FAERS Safety Report 6812637-0 (Version None)
Quarter: 2010Q3

REPORT INFORMATION
  Report Type: 
  Country: None (occurrence: None)
  Receive Date: 20100701
  Receipt Date: 20100621
  Transmission Date: 20110219
  Serious: Yes (Hospitalization)
  Sender: FDA-Public Use
  Company Number: JP-ROCHE-644447

PATIENT
  Sex: Male

DRUGS (3)
  1. TOCILIZUMAB [Suspect]
     Indication: RHEUMATOID ARTHRITIS
     Route: 041
     Dates: start: 20090714, end: 20090714
  2. PREDONINE [Concomitant]
     Route: 048
  3. COTRIM [Concomitant]
     Dosage: FORM: PERORAL AGENT, NOTE: DOSAGE IS UNCERTAIN.
     Route: 048

REACTIONS (1)
  - CONVULSION [None]
